FAERS Safety Report 12213127 (Version 1)
Quarter: 2016Q1

REPORT INFORMATION
  Report Type: Spontaneous
  Country: US (occurrence: None)
  Receive Date: 20160325
  Receipt Date: 20160325
  Transmission Date: 20160526
  Serious: Yes (Other)
  Sender: FDA-Public Use
  Company Number: None

PATIENT
  Age: 62 Year
  Sex: Female
  Weight: 54.43 kg

DRUGS (5)
  1. LEXAPRO MURO [Concomitant]
  2. LEVOTHYROXINE. [Concomitant]
     Active Substance: LEVOTHYROXINE
  3. SODIUM CHLORIDE (EYE DROPS) [Concomitant]
  4. LUBRICANT EYE DROPS [Concomitant]
     Active Substance: POLYETHYLENE GLYCOL 400\PROPYLENE GLYCOL
  5. PLUS WHITE 5 MINUTE CCA INDUSTRIES [Suspect]
     Active Substance: HYDROGEN PEROXIDE
     Indication: DENTAL COSMETIC PROCEDURE
     Dosage: GEL IN MOUTH TRAY, FOLLOWED BY RINSE

REACTIONS (7)
  - Pain [None]
  - Tooth hypoplasia [None]
  - Tooth fracture [None]
  - Hyperaesthesia [None]
  - Tooth discolouration [None]
  - Skin irritation [None]
  - Tooth injury [None]

NARRATIVE: CASE EVENT DATE: 20160225
